FAERS Safety Report 6130448-9 (Version None)
Quarter: 2009Q1

REPORT INFORMATION
  Report Type: 
  Country: None (occurrence: None)
  Receive Date: 20090323
  Receipt Date: 20090318
  Transmission Date: 20090719
  Serious: Yes (Hospitalization, Other)
  Sender: FDA-Public Use
  Company Number: 1000005298

PATIENT
  Age: 54 Year

DRUGS (6)
  1. THYROLAR-3 [Suspect]
     Indication: HYPOTHYROIDISM
     Dosage: 1 IN 1 D, ORAL
     Route: 048
     Dates: start: 19660101, end: 20080901
  2. THYROLAR-2 [Suspect]
     Indication: HYPOTHYROIDISM
     Dosage: 1 IN 1 D, ORAL
     Route: 048
     Dates: start: 20080901
  3. DIURETIC (NOS) [Suspect]
     Indication: HYPOTHYROIDISM
     Dates: start: 20060101, end: 20060101
  4. NORVASC [Suspect]
     Indication: HYPERTENSION
     Dates: start: 20070101, end: 20070101
  5. COZAAR [Concomitant]
  6. MULTI-VITAMINS [Concomitant]

REACTIONS (8)
  - ALOPECIA [None]
  - CONSTIPATION [None]
  - DRY SKIN [None]
  - FATIGUE [None]
  - MIGRAINE [None]
  - MYOCARDIAL INFARCTION [None]
  - TEMPERATURE INTOLERANCE [None]
  - WEIGHT INCREASED [None]
